FAERS Safety Report 5556753-2 (Version None)
Quarter: 2007Q4

REPORT INFORMATION
  Report Type: 
  Country: None (occurrence: None)
  Receive Date: 20071128
  Receipt Date: 20070913
  Transmission Date: 20080405
  Serious: Yes (Other)
  Sender: FDA-Public Use
  Company Number: CIP07001815

PATIENT
  Age: 63 Year
  Sex: Female
  Weight: 61.2 kg

DRUGS (7)
  1. ACTONEL [Suspect]
     Indication: OSTEOPOROSIS
     Dosage: 35 MG ONCE WEEKLY, ORAL
     Route: 048
     Dates: start: 20050125
  2. FOSAMAX [Suspect]
     Indication: OSTEOPOROSIS
     Dosage: 70 MG ONCE WEEKLY, ORAL
     Route: 048
     Dates: start: 20030101, end: 20040101
  3. LIPITOR [Concomitant]
  4. FLUOXETINE [Concomitant]
  5. COZAAR [Concomitant]
  6. GLYBURIDE [Concomitant]
  7. SINEMET [Concomitant]

REACTIONS (7)
  - HYPOAESTHESIA ORAL [None]
  - ORAL INFECTION [None]
  - ORAL PAIN [None]
  - OSTEOMYELITIS [None]
  - OSTEONECROSIS [None]
  - PURULENT DISCHARGE [None]
  - TOOTH EXTRACTION [None]
